FAERS Safety Report 22097108 (Version 1)
Quarter: 2023Q1

REPORT INFORMATION
  Report Type: Spontaneous
  Country: HU (occurrence: HU)
  Receive Date: 20230315
  Receipt Date: 20230315
  Transmission Date: 20230418
  Serious: Yes (Other)
  Sender: FDA-Public Use
  Company Number: HU-Gedeon Richter Plc.-2023_GR_001821

PATIENT
  Age: 41 Year
  Sex: Female

DRUGS (1)
  1. GANIRELIX ACETATE [Suspect]
     Active Substance: GANIRELIX ACETATE
     Indication: Ovulation induction
     Dosage: UNK

REACTIONS (1)
  - Haemorrhagic ovarian cyst [Unknown]
